FAERS Safety Report 7037391-1 (Version None)
Quarter: 2010Q4

REPORT INFORMATION
  Report Type: 
  Country: None (occurrence: None)
  Receive Date: 20101011
  Receipt Date: 20100930
  Transmission Date: 20110411
  Serious: Yes (Death, Hospitalization)
  Sender: FDA-Public Use
  Company Number: JP-PFIZER INC-2010060682

PATIENT
  Age: 62 Year
  Sex: Male
  Weight: 63 kg

DRUGS (4)
  1. SUNITINIB MALATE [Suspect]
     Indication: GASTROINTESTINAL STROMAL TUMOUR
     Dosage: 50 MG, 1X/DAY
     Route: 048
     Dates: start: 20100413, end: 20100510
  2. GLEEVEC [Concomitant]
     Dosage: 400 MG, 1X/DAY
     Route: 048
     Dates: start: 20051208, end: 20100301
  3. NORVASC [Concomitant]
     Dosage: 5 MG, 2X/DAY
     Route: 048
     Dates: end: 20100510
  4. BLOPRESS [Concomitant]
     Dosage: 8 MG, 1X/DAY
     Route: 048
     Dates: end: 20100511

REACTIONS (1)
  - RHABDOMYOLYSIS [None]
